FAERS Safety Report 15563266 (Version 2)
Quarter: 2018Q4

REPORT INFORMATION
  Report Type: Spontaneous
  Country: FR (occurrence: FR)
  Receive Date: 20181029
  Receipt Date: 20181107
  Transmission Date: 20190205
  Serious: Yes (Hospitalization)
  Sender: FDA-Public Use
  Company Number: PHHY2018FR138079

PATIENT
  Age: 15 Year
  Sex: Female

DRUGS (1)
  1. FUROSEMIDE. [Suspect]
     Active Substance: FUROSEMIDE
     Indication: PRODUCT USED FOR UNKNOWN INDICATION
     Dosage: UNK
     Route: 065

REACTIONS (12)
  - Myalgia [Unknown]
  - Hypomagnesaemia [Unknown]
  - Nausea [Unknown]
  - Electrocardiogram QT prolonged [Unknown]
  - Metabolic alkalosis [Unknown]
  - Vertigo [Unknown]
  - Hyponatraemia [Unknown]
  - Asthenia [Unknown]
  - Drug abuse [Unknown]
  - Abdominal pain [Unknown]
  - Hypokalaemia [Unknown]
  - Hypochloraemia [Unknown]
